FAERS Safety Report 13438364 (Version 1)
Quarter: 2017Q2

REPORT INFORMATION
  Report Type: Spontaneous
  Country: US (occurrence: US)
  Receive Date: 20170412
  Receipt Date: 20170412
  Transmission Date: 20170830
  Serious: No
  Sender: FDA-Public Use
  Company Number: US-SA-2017SA030822

PATIENT
  Age: 62 Year
  Sex: Female

DRUGS (1)
  1. ALLEGRA ALLERGY [Suspect]
     Active Substance: FEXOFENADINE HYDROCHLORIDE
     Indication: IMMUNE SYSTEM DISORDER
     Route: 048

REACTIONS (4)
  - Drug dose omission [Unknown]
  - Swollen tongue [Unknown]
  - Mouth swelling [Unknown]
  - Product use in unapproved indication [Unknown]
